FAERS Safety Report 7333291-8 (Version None)
Quarter: 2011Q1

REPORT INFORMATION
  Report Type: 
  Country: None (occurrence: None)
  Receive Date: 20110304
  Receipt Date: 20110221
  Transmission Date: 20110831
  Serious: Yes (Hospitalization, Other)
  Sender: FDA-Public Use
  Company Number: FR-ELI_LILLY_AND_COMPANY-FR201101007053

PATIENT
  Sex: Male

DRUGS (7)
  1. ASPEGIC 325 [Concomitant]
     Dosage: 250 MG, DAILY (1/D)
  2. IMOVANE [Concomitant]
     Dosage: 7.5 MG, DAILY (1/D)
  3. ZYPREXA [Suspect]
     Dosage: 10 MG, DAILY (1/D)
     Route: 048
     Dates: start: 20020101, end: 20101223
  4. CORDARONE [Concomitant]
     Dosage: 1 D/F, DAILY (1/D)
  5. NEXIUM [Concomitant]
     Dosage: 1 D/F, DAILY (1/D)
  6. ISOVIR [Concomitant]
     Dosage: 1 D/F, DAILY (1/D)
  7. TRIATEC [Concomitant]
     Dosage: 2.5 MG, DAILY (1/D)

REACTIONS (4)
  - RHABDOMYOLYSIS [None]
  - RENAL FAILURE [None]
  - FALL [None]
  - HYPOTHERMIA [None]
